FAERS Safety Report 8550344-7 (Version None)
Quarter: 2012Q3

REPORT INFORMATION
  Report Type: 
  Country: None (occurrence: None)
  Receive Date: 20120730
  Receipt Date: 20120724
  Transmission Date: 20120928
  Serious: Yes (Hospitalization)
  Sender: FDA-Public Use
  Company Number: US-PFIZER INC-2012179379

PATIENT
  Sex: Female
  Weight: 111 kg

DRUGS (5)
  1. SUTENT [Suspect]
     Indication: NEOPLASM
     Dosage: 12.5 MG, 1X/DAY
     Route: 048
  2. LASIX [Concomitant]
     Dosage: UNK
  3. SUTENT [Suspect]
     Dosage: 75 MG, 1X/DAY
     Route: 048
  4. POTASSIUM [Concomitant]
     Indication: BLOOD POTASSIUM DECREASED
     Dosage: UNK
  5. SYNTHROID [Concomitant]
     Indication: HYPOTHYROIDISM
     Dosage: UNK

REACTIONS (1)
  - FALL [None]
